FAERS Safety Report 8523037-X (Version None)
Quarter: 2012Q3

REPORT INFORMATION
  Report Type: 
  Country: None (occurrence: None)
  Receive Date: 20120720
  Receipt Date: 20120713
  Transmission Date: 20120928
  Serious: Yes (Other)
  Sender: FDA-Public Use
  Company Number: US-ROCHE-1088213

PATIENT
  Sex: Female

DRUGS (1)
  1. XELODA [Suspect]
     Indication: BREAST CANCER

REACTIONS (5)
  - ADVERSE DRUG REACTION [None]
  - VOMITING [None]
  - CONFUSIONAL STATE [None]
  - CONSTIPATION [None]
  - TREMOR [None]
